FAERS Safety Report 20216233 (Version 1)
Quarter: 2021Q4

REPORT INFORMATION
  Report Type: Spontaneous
  Country: US (occurrence: None)
  Receive Date: 20211221
  Receipt Date: 20211221
  Transmission Date: 20220303
  Serious: Yes (Other)
  Sender: FDA-Public Use
  Company Number: None

PATIENT
  Sex: Female

DRUGS (13)
  1. REPATHA [Suspect]
     Active Substance: EVOLOCUMAB
     Dosage: FREQUENCY : EVERY OTHER WEEK;?
     Route: 058
     Dates: start: 20211026
  2. TURMERIC CAP 500MG [Concomitant]
  3. SYNTHROID TAB 88MCG [Concomitant]
  4. PROBIOTIC CAP [Concomitant]
  5. MULTIPLE VIT TAB [Concomitant]
  6. METOPROL SUC TAB 25MG ER [Concomitant]
  7. METFORMIN TAB 850MG [Concomitant]
  8. MAGNESIUM TAB 250MG [Concomitant]
  9. LOSARTAN POT TAB 100MG [Concomitant]
  10. FISH OIL CAP [Concomitant]
  11. FEBUXOSTAT TAB 40MG [Concomitant]
  12. DOXYCYCL HYC CAP 100MG [Concomitant]
  13. ALOGLIPTIN TAB 25MG [Concomitant]

REACTIONS (4)
  - Therapy interrupted [None]
  - Blood potassium increased [None]
  - Leukaemia [None]
  - Injection site pain [None]
